FAERS Safety Report 11199318 (Version 2)
Quarter: 2015Q3

REPORT INFORMATION
  Report Type: Spontaneous
  Country: US (occurrence: US)
  Receive Date: 20150618
  Receipt Date: 20150721
  Transmission Date: 20151125
  Serious: Yes (Other)
  Sender: FDA-Public Use
  Company Number: US-PFIZER INC-2015193711

PATIENT
  Age: 61 Year
  Sex: Female

DRUGS (2)
  1. ROBITUSSIN MAXIMUM STRENGTH COUGH PLUS CHEST CONGESTION DM [Suspect]
     Active Substance: DEXTROMETHORPHAN HYDROBROMIDE\GUAIFENESIN
     Indication: NASAL CONGESTION
  2. ROBITUSSIN MAXIMUM STRENGTH COUGH PLUS CHEST CONGESTION DM [Suspect]
     Active Substance: DEXTROMETHORPHAN HYDROBROMIDE\GUAIFENESIN
     Indication: COUGH
     Dosage: UNK
     Dates: start: 201506

REACTIONS (5)
  - Dysphagia [Recovered/Resolved]
  - Choking [Recovered/Resolved]
  - Product difficult to swallow [Recovered/Resolved]
  - Retching [Recovered/Resolved]
  - Product size issue [Recovered/Resolved]

NARRATIVE: CASE EVENT DATE: 201506
